FAERS Safety Report 8365317-7 (Version None)
Quarter: 2012Q2

REPORT INFORMATION
  Report Type: 
  Country: None (occurrence: None)
  Receive Date: 20120516
  Receipt Date: 20120504
  Transmission Date: 20120825
  Serious: Yes (Life-Threatening, Hospitalization)
  Sender: FDA-Public Use
  Company Number: EG-COVIDIEN/TYCO HEALTHCARE/MALLINCKRODT-T201201709

PATIENT
  Age: 24 Year

DRUGS (1)
  1. IMIPRAMINE PAMOATE [Suspect]
     Indication: DEPRESSION
     Dosage: UNK

REACTIONS (2)
  - OVERDOSE [None]
  - SUICIDE ATTEMPT [None]
